FAERS Safety Report 21758138 (Version 1)
Quarter: 2022Q4

REPORT INFORMATION
  Report Type: Report from Study
  Country: US (occurrence: US)
  Receive Date: 20221221
  Receipt Date: 20221221
  Transmission Date: 20230113
  Serious: No
  Sender: FDA-Public Use
  Company Number: US-ABBVIE-4200662

PATIENT
  Sex: Male

DRUGS (1)
  1. HUMIRA [Suspect]
     Active Substance: ADALIMUMAB
     Indication: Psoriasis
     Dosage: CF?FORM STRENGTH: 40MG
     Route: 058
     Dates: start: 2016

REACTIONS (3)
  - Drug tolerance increased [Unknown]
  - Therapeutic product effect decreased [Unknown]
  - Psoriasis [Unknown]

NARRATIVE: CASE EVENT DATE: 20200101
